FAERS Safety Report 10751356 (Version 3)
Quarter: 2015Q2

REPORT INFORMATION
  Report Type: Report from Study
  Country: GB (occurrence: GB)
  Receive Date: 20150130
  Receipt Date: 20150507
  Transmission Date: 20150821
  Serious: Yes (Hospitalization)
  Sender: FDA-Public Use
  Company Number: GB-ROCHE-1502743

PATIENT
  Age: 45 Year
  Sex: Female
  Weight: 113.8 kg

DRUGS (32)
  1. PEG/L-ASPARAGINASE [Suspect]
     Active Substance: PEGASPARGASE
     Indication: ACUTE LYMPHOCYTIC LEUKAEMIA
     Dosage: DAY 18
     Route: 042
     Dates: start: 20121102, end: 20121102
  2. POTASSIUM CHLORIDE. [Concomitant]
     Active Substance: POTASSIUM CHLORIDE
     Dosage: 1 TAB
     Route: 048
     Dates: start: 20121108, end: 20121110
  3. PARACETAMOL [Concomitant]
     Active Substance: ACETAMINOPHEN
     Indication: PAIN
     Route: 048
     Dates: start: 20121016, end: 20121016
  4. HYDROCORTISONE. [Concomitant]
     Active Substance: HYDROCORTISONE
     Dosage: APPLY THINLY
     Route: 065
     Dates: start: 20121023, end: 20121114
  5. CHLORPHENIRAMINE MALEATE. [Concomitant]
     Active Substance: CHLORPHENIRAMINE MALEATE
     Dosage: PRN
     Route: 042
     Dates: start: 20121017, end: 20121105
  6. ENOXAPARIN [Concomitant]
     Active Substance: ENOXAPARIN
     Route: 058
     Dates: start: 20121016, end: 20121026
  7. COTRIMOXAZOLE [Concomitant]
     Active Substance: SULFAMETHOXAZOLE\TRIMETHOPRIM
     Dosage: MON AND THURSDAY BD
     Route: 048
     Dates: start: 20121018
  8. TRANEXAMIC ACID. [Concomitant]
     Active Substance: TRANEXAMIC ACID
     Dosage: TDS
     Route: 048
     Dates: start: 20121028, end: 20121029
  9. PARACETAMOL [Concomitant]
     Active Substance: ACETAMINOPHEN
     Route: 048
     Dates: start: 20121019, end: 20121019
  10. ENOXAPARIN [Concomitant]
     Active Substance: ENOXAPARIN
     Route: 058
     Dates: start: 20121102, end: 20121104
  11. DEXAMETHASONE. [Concomitant]
     Active Substance: DEXAMETHASONE
     Route: 048
     Dates: start: 20121016, end: 20121102
  12. DAUNORUBICIN [Concomitant]
     Active Substance: DAUNORUBICIN
     Dosage: 4 TIMES
     Route: 042
     Dates: start: 20121016, end: 20121106
  13. ENOXAPARIN [Concomitant]
     Active Substance: ENOXAPARIN
     Route: 058
     Dates: start: 20121104
  14. ALLOPURINOL. [Concomitant]
     Active Substance: ALLOPURINOL
     Route: 048
     Dates: start: 20121016, end: 20121112
  15. ONDANSETRON [Concomitant]
     Active Substance: ONDANSETRON
     Indication: NAUSEA
     Dosage: PRN
     Route: 048
     Dates: start: 20121023, end: 20121102
  16. METHOTREXATE [Concomitant]
     Active Substance: METHOTREXATE
     Dosage: ONCE
     Route: 065
     Dates: start: 20121031, end: 20121031
  17. GENTAMICIN. [Concomitant]
     Active Substance: GENTAMICIN
     Indication: INFECTION
     Route: 042
     Dates: start: 20121107, end: 20121109
  18. COLISTIN [Concomitant]
     Active Substance: COLISTIN
     Dosage: 1.5 MEGA UNITS
     Route: 048
     Dates: start: 20121016
  19. HYALURONIDASE [Concomitant]
     Active Substance: HYALURONIDASE
     Dosage: 155 M/S
     Route: 058
     Dates: start: 20121023, end: 20121023
  20. RITUXIMAB [Suspect]
     Active Substance: RITUXIMAB
     Indication: ACUTE LYMPHOCYTIC LEUKAEMIA
     Dosage: DAYS 3 10 17 24
     Route: 042
     Dates: start: 20121018, end: 20121108
  21. AMPHOTERICIN [Concomitant]
     Active Substance: AMPHOTERICIN B
     Indication: PAIN
     Route: 042
     Dates: start: 20121017, end: 20121017
  22. AMPHOTERICIN [Concomitant]
     Active Substance: AMPHOTERICIN B
     Route: 042
     Dates: start: 20121017, end: 20121031
  23. AMPHOTERICIN [Concomitant]
     Active Substance: AMPHOTERICIN B
     Route: 042
     Dates: start: 20121102, end: 20121112
  24. HYDROCORTISONE. [Concomitant]
     Active Substance: HYDROCORTISONE
     Dosage: PRN
     Route: 042
     Dates: start: 20121017, end: 20121105
  25. ENOXAPARIN [Concomitant]
     Active Substance: ENOXAPARIN
     Route: 058
     Dates: start: 20121027, end: 20121101
  26. ENOXAPARIN [Concomitant]
     Active Substance: ENOXAPARIN
     Route: 058
     Dates: start: 20121104
  27. LANSOPRAZOLE. [Concomitant]
     Active Substance: LANSOPRAZOLE
     Route: 048
     Dates: start: 20121016
  28. PARACETAMOL [Concomitant]
     Active Substance: ACETAMINOPHEN
     Route: 048
     Dates: start: 20121020, end: 20121026
  29. TRAMADOL [Concomitant]
     Active Substance: TRAMADOL
     Indication: PAIN
     Dosage: PRN
     Route: 048
     Dates: start: 20121020, end: 20121026
  30. ACICLOVIR [Concomitant]
     Active Substance: ACYCLOVIR
     Route: 048
     Dates: start: 20121016
  31. PIPERACILLIN/TAZOBACTAM [Concomitant]
     Active Substance: PIPERACILLIN SODIUM\TAZOBACTAM SODIUM
     Indication: INFECTION
     Dosage: TDS
     Route: 042
     Dates: start: 20121107, end: 20121112
  32. VINCRISTINE [Concomitant]
     Active Substance: VINCRISTINE
     Dosage: 4 TIMES
     Route: 042
     Dates: start: 20121016, end: 20121106

REACTIONS (1)
  - Blood bilirubin increased [Recovered/Resolved]

NARRATIVE: CASE EVENT DATE: 20121115
